FAERS Safety Report 5509652-6 (Version None)
Quarter: 2007Q4

REPORT INFORMATION
  Report Type: 
  Country: None (occurrence: None)
  Receive Date: 20071107
  Receipt Date: 20071107
  Transmission Date: 20080405
  Serious: Yes (Life-Threatening)
  Sender: FDA-Public Use
  Company Number: None

PATIENT
  Age: 48 Year
  Sex: Female
  Weight: 104 kg

DRUGS (2)
  1. OXACILLIN [Suspect]
     Indication: ARTHRITIS BACTERIAL
     Dosage: 2G Q4? IV
     Route: 042
     Dates: start: 20070619, end: 20070717
  2. OXACILLIN [Suspect]

REACTIONS (1)
  - NEUTROPENIA [None]
